FAERS Safety Report 5322914-0 (Version None)
Quarter: 2007Q2

REPORT INFORMATION
  Report Type: 
  Country: None (occurrence: None)
  Receive Date: 20070511
  Receipt Date: 20070503
  Transmission Date: 20071010
  Serious: Yes (Other)
  Sender: FDA-Public Use
  Company Number: US-PFIZER INC-2007037028

PATIENT
  Sex: Female
  Weight: 52.2 kg

DRUGS (5)
  1. LIPITOR [Suspect]
     Indication: BLOOD CHOLESTEROL INCREASED
  2. CELEBREX [Suspect]
     Indication: ARTHRITIS
     Dates: start: 20070401, end: 20070401
  3. ZETIA [Suspect]
     Indication: BLOOD CHOLESTEROL INCREASED
  4. NEXIUM [Concomitant]
  5. FISH OIL [Concomitant]
     Indication: BLOOD CHOLESTEROL INCREASED

REACTIONS (2)
  - LIP SWELLING [None]
  - SWELLING FACE [None]
